FAERS Safety Report 5744903-4 (Version None)
Quarter: 2008Q2

REPORT INFORMATION
  Report Type: 
  Country: None (occurrence: None)
  Receive Date: 20080516
  Receipt Date: 20080502
  Transmission Date: 20081010
  Serious: Yes (Hospitalization)
  Sender: FDA-Public Use
  Company Number: DSA_31765_2008

PATIENT
  Sex: Male

DRUGS (1)
  1. TAVOR /00273201/ (TAVOR - LORAZEPAM) 1 MG (NOT SPECIFIED) [Suspect]
     Dosage: 20 MG 1X MG (NOT SPECIFIED)
     Dates: start: 20080421, end: 20080421

REACTIONS (6)
  - BLOOD CREATINE PHOSPHOKINASE INCREASED [None]
  - DRUG ABUSE [None]
  - FATIGUE [None]
  - INTENTIONAL OVERDOSE [None]
  - SUICIDE ATTEMPT [None]
  - TACHYCARDIA [None]
